FAERS Safety Report 14452892 (Version 3)
Quarter: 2019Q4

REPORT INFORMATION
  Report Type: Report from Study
  Country: US (occurrence: US)
  Receive Date: 20180129
  Receipt Date: 20191205
  Transmission Date: 20200122
  Serious: Yes (Other)
  Sender: FDA-Public Use
  Company Number: US-TEVA-2018-US-851966

PATIENT
  Sex: Female

DRUGS (3)
  1. AUSTEDO [Suspect]
     Active Substance: DEUTETRABENAZINE
     Route: 065
  2. AUSTEDO [Suspect]
     Active Substance: DEUTETRABENAZINE
     Indication: TARDIVE DYSKINESIA
     Dosage: TITRATING
     Route: 065
     Dates: start: 20171221
  3. AUSTEDO [Suspect]
     Active Substance: DEUTETRABENAZINE
     Route: 065

REACTIONS (10)
  - Depressed mood [Unknown]
  - Pain in extremity [Unknown]
  - Product use issue [Unknown]
  - Anxiety [Unknown]
  - Facial spasm [Unknown]
  - Feeling abnormal [Unknown]
  - Crying [Unknown]
  - Dyskinesia [Unknown]
  - Depression [Unknown]
  - Apathy [Unknown]
